FAERS Safety Report 16045775 (Version 3)
Quarter: 2020Q3

REPORT INFORMATION
  Report Type: Report from Study
  Country: DE (occurrence: DE)
  Receive Date: 20190307
  Receipt Date: 20200703
  Transmission Date: 20201102
  Serious: No
  Sender: FDA-Public Use
  Company Number: DE-PHARMING-PHADE2019000154

PATIENT

DRUGS (4)
  1. RUCONEST [Suspect]
     Active Substance: HUMAN C1-ESTERASE INHIBITOR
     Indication: PROPHYLAXIS
     Dosage: 4200 IU, TWICE WEEKLY
     Route: 058
     Dates: start: 201712
  2. RUCONEST [Suspect]
     Active Substance: HUMAN C1-ESTERASE INHIBITOR
     Dosage: 4200 IU, TWICE WEEKLY
     Route: 058
     Dates: start: 20180206
  3. RUCONEST [Suspect]
     Active Substance: HUMAN C1-ESTERASE INHIBITOR
     Dosage: UNK IU, AS NEEDED
     Route: 042
     Dates: start: 201905
  4. RUCONEST [Suspect]
     Active Substance: HUMAN C1-ESTERASE INHIBITOR
     Indication: HEREDITARY ANGIOEDEMA
     Dosage: 1200 IU/20ML AQUA, TWICE WEEKLY FOR PROPHYLAXIS
     Route: 042
     Dates: start: 201901, end: 201905

REACTIONS (3)
  - Influenza [Recovered/Resolved]
  - Product use in unapproved indication [Recovered/Resolved]
  - Arthralgia [Unknown]

NARRATIVE: CASE EVENT DATE: 2019
